FAERS Safety Report 5628021-1 (Version None)
Quarter: 2008Q1

REPORT INFORMATION
  Report Type: 
  Country: None (occurrence: None)
  Receive Date: 20080215
  Receipt Date: 20080207
  Transmission Date: 20080703
  Serious: Yes (Hospitalization, Other)
  Sender: FDA-Public Use
  Company Number: US-ELI_LILLY_AND_COMPANY-US200709002633

PATIENT
  Sex: Female
  Weight: 92.971 kg

DRUGS (10)
  1. BYETTA [Suspect]
     Dosage: 5 UG, 2/D
     Route: 058
     Dates: start: 20061101, end: 20061201
  2. BYETTA [Suspect]
     Dosage: 10 UG, 2/D
     Route: 058
     Dates: start: 20061201, end: 20080115
  3. BYETTA [Suspect]
     Dosage: 10 UG, 2/D
     Route: 058
     Dates: start: 20061201, end: 20080115
  4. METFORMIN HCL [Concomitant]
     Dosage: 500 MG, 2/D
     Route: 048
     Dates: end: 20080115
  5. METFORMIN HCL [Concomitant]
     Dosage: 1000 UNK, 2/D
     Dates: start: 20080115
  6. VASOTEC [Concomitant]
     Indication: HYPERTENSION
     Dosage: 20 MG, 2/D
  7. LIPITOR [Concomitant]
     Indication: BLOOD CHOLESTEROL INCREASED
     Dosage: 20 MG, EACH EVENING
  8. LASIX [Concomitant]
     Indication: POLYURIA
     Dosage: 40 UNK, DAILY (1/D)
  9. DIOVAN [Concomitant]
     Indication: HYPERTENSION
     Dosage: 160 UNK, 2/D
  10. COREG [Concomitant]
     Indication: HYPERTENSION
     Dosage: 25 MG, 2/D

REACTIONS (8)
  - ABDOMINAL PAIN UPPER [None]
  - COLON CANCER [None]
  - DECREASED APPETITE [None]
  - DIZZINESS [None]
  - INJECTION SITE PAIN [None]
  - NAUSEA [None]
  - RECTAL HAEMORRHAGE [None]
  - WEIGHT DECREASED [None]
